FAERS Safety Report 5140528-2 (Version None)
Quarter: 2006Q4

REPORT INFORMATION
  Report Type: 
  Country: None (occurrence: None)
  Receive Date: 20061025
  Receipt Date: 20061013
  Transmission Date: 20070319
  Serious: Yes (Hospitalization)
  Sender: FDA-Public Use
  Company Number: 2006BH014074

PATIENT
  Age: 94 Year
  Sex: Female
  Weight: 40 kg

DRUGS (1)
  1. LIDOCAINE [Suspect]
     Indication: ANAESTHESIA
     Dosage: 200 MG

REACTIONS (10)
  - BLOOD PRESSURE SYSTOLIC INCREASED [None]
  - BODY TEMPERATURE DECREASED [None]
  - GRAND MAL CONVULSION [None]
  - INCORRECT ROUTE OF DRUG ADMINISTRATION [None]
  - MENTAL STATUS CHANGES [None]
  - MOANING [None]
  - PO2 DECREASED [None]
  - POST PROCEDURAL COMPLICATION [None]
  - SOMNOLENCE [None]
  - SPEECH DISORDER [None]
